FAERS Safety Report 7416994-6 (Version None)
Quarter: 2011Q2

REPORT INFORMATION
  Report Type: 
  Country: None (occurrence: None)
  Receive Date: 20110407
  Receipt Date: 20110331
  Transmission Date: 20111010
  Serious: Yes (Other)
  Sender: FDA-Public Use
  Company Number: B0710466A

PATIENT
  Age: 44 Year
  Sex: Male

DRUGS (3)
  1. FLUCONAZOLE [Suspect]
  2. AZITHROMYCIN [Suspect]
  3. CEFTAZIDIME SODIUM [Suspect]

REACTIONS (2)
  - HEPATITIS [None]
  - HEPATOTOXICITY [None]
